FAERS Safety Report 7287723-4 (Version None)
Quarter: 2011Q1

REPORT INFORMATION
  Report Type: 
  Country: None (occurrence: None)
  Receive Date: 20110201
  Receipt Date: 20110124
  Transmission Date: 20110831
  Serious: Yes (Other)
  Sender: FDA-Public Use
  Company Number: JHP201100016

PATIENT
  Sex: Male
  Weight: 3.7 kg

DRUGS (2)
  1. CERVIDIL [Suspect]
     Indication: LABOUR INDUCTION
     Dosage: TRANSPLACENTAL
     Route: 064
  2. PITOCIN [Suspect]
     Indication: LABOUR INDUCTION
     Dosage: TRANSPLACENTAL
     Route: 064

REACTIONS (5)
  - FOETAL DISTRESS SYNDROME [None]
  - JAUNDICE NEONATAL [None]
  - CAESAREAN SECTION [None]
  - PYREXIA [None]
  - MATERNAL DRUGS AFFECTING FOETUS [None]
